FAERS Safety Report 7288826-0 (Version None)
Quarter: 2011Q1

REPORT INFORMATION
  Report Type: 
  Country: None (occurrence: None)
  Receive Date: 20110211
  Receipt Date: 20110208
  Transmission Date: 20110831
  Serious: Yes (Death, Other)
  Sender: FDA-Public Use
  Company Number: US-AMGEN-USASP2011004965

PATIENT
  Age: 38 Year
  Sex: Female

DRUGS (2)
  1. NPLATE [Suspect]
     Indication: THROMBOCYTOPENIA
     Dosage: 2 A?G/KG, UNK
     Dates: start: 20101005, end: 20110125
  2. NPLATE [Suspect]
     Dates: start: 20101005

REACTIONS (4)
  - NAUSEA [None]
  - DYSPNOEA [None]
  - NEOPLASM MALIGNANT [None]
  - VOMITING [None]
